FAERS Safety Report 13346247 (Version 1)
Quarter: 2017Q1

REPORT INFORMATION
  Report Type: Spontaneous
  Country: US (occurrence: US)
  Receive Date: 20170317
  Receipt Date: 20170317
  Transmission Date: 20170428
  Serious: Yes (Disabling, Other)
  Sender: FDA-Public Use
  Company Number: None

PATIENT
  Age: 53 Year
  Sex: Male
  Weight: 92.7 kg

DRUGS (1)
  1. DEXTROAMPHET SACCHARAT, AMPHET ASPARTATE, DEXTROAMPHET SULFATE AND AMPHET SULFAT [Suspect]
     Active Substance: AMPHETAMINE ASPARTATE\AMPHETAMINE SULFATE\DEXTROAMPHETAMINE SACCHARATE\DEXTROAMPHETAMINE SULFATE
     Indication: ATTENTION DEFICIT/HYPERACTIVITY DISORDER
     Dosage: ?          QUANTITY:225 TABLET(S);OTHER FREQUENCY:1.5 TAB 5/DAY;?
     Route: 048
     Dates: start: 20170316, end: 20170316

REACTIONS (7)
  - Hypersensitivity [None]
  - Agitation [None]
  - Fatigue [None]
  - Migraine [None]
  - Vomiting [None]
  - Product quality issue [None]
  - Irritability [None]

NARRATIVE: CASE EVENT DATE: 20170316
